FAERS Safety Report 6414774-1 (Version None)
Quarter: 2009Q4

REPORT INFORMATION
  Report Type: 
  Country: None (occurrence: None)
  Receive Date: 20091026
  Receipt Date: 20091026
  Transmission Date: 20100525
  Serious: Yes (Hospitalization)
  Sender: FDA-Public Use
  Company Number: None

PATIENT
  Sex: Male
  Weight: 112.9457 kg

DRUGS (1)
  1. RITUXIMAB [Suspect]
     Indication: CHRONIC LEUKAEMIA
     Dosage: 806MG IV
     Route: 042
     Dates: start: 20091021, end: 20091021

REACTIONS (5)
  - CHILLS [None]
  - HAEMOGLOBIN DECREASED [None]
  - HYPERHIDROSIS [None]
  - HYPERTENSION [None]
  - OXYGEN SATURATION DECREASED [None]
